FAERS Safety Report 7415787-3 (Version None)
Quarter: 2011Q2

REPORT INFORMATION
  Report Type: 
  Country: None (occurrence: None)
  Receive Date: 20110414
  Receipt Date: 20110406
  Transmission Date: 20111010
  Serious: Yes (Hospitalization)
  Sender: FDA-Public Use
  Company Number: US-BAXTER-2011BH009423

PATIENT
  Age: 65 Year
  Sex: Female

DRUGS (1)
  1. DIANEAL [Suspect]
     Indication: PERITONEAL DIALYSIS
     Route: 033

REACTIONS (8)
  - BRONCHITIS [None]
  - LARGE INTESTINAL ULCER [None]
  - LARGE INTESTINAL HAEMORRHAGE [None]
  - ASTHENIA [None]
  - PULMONARY MASS [None]
  - HAEMORRHAGE [None]
  - PNEUMONIA [None]
  - HYPERTENSION [None]
